FAERS Safety Report 9819339 (Version 2)
Quarter: 2014Q1

REPORT INFORMATION
  Report Type: Spontaneous
  Country: US (occurrence: US)
  Receive Date: 20140115
  Receipt Date: 20140220
  Transmission Date: 20141002
  Serious: Yes (Other)
  Sender: FDA-Public Use
  Company Number: US-PFIZER INC-2014011696

PATIENT
  Age: 84 Year
  Sex: Female
  Weight: 73 kg

DRUGS (2)
  1. CELEBREX [Suspect]
     Indication: OSTEOARTHRITIS
     Dosage: 200 MG, 1X/DAY
  2. LEVOXYL [Concomitant]
     Indication: THYROID DISORDER
     Dosage: 116 MG, 1X/DAY

REACTIONS (2)
  - Age-related macular degeneration [Unknown]
  - Blindness unilateral [Unknown]
